FAERS Safety Report 19263748 (Version 1)
Quarter: 2021Q2

REPORT INFORMATION
  Report Type: Spontaneous
  Country: US (occurrence: US)
  Receive Date: 20210517
  Receipt Date: 20210517
  Transmission Date: 20210717
  Serious: Yes (Disabling)
  Sender: FDA-Public Use
  Company Number: US-JNJFOC-20210507160

PATIENT
  Age: 36 Year
  Sex: Female

DRUGS (1)
  1. NEOSPORIN LIP HEALTH OVERNIGHT RENEWAL THERAPY [Suspect]
     Active Substance: PETROLATUM
     Indication: SKIN DISORDER
     Dosage: USED NIGHTLY ON LIPS FOR THE PAST SEVERAL YEARS, BEFORE BED
     Route: 061
     Dates: start: 20201019

REACTIONS (3)
  - Oral mucosal scar [Unknown]
  - Application site pain [Recovered/Resolved]
  - Application site rash [Recovered/Resolved]

NARRATIVE: CASE EVENT DATE: 20201020
